FAERS Safety Report 7736761-3 (Version None)
Quarter: 2011Q3

REPORT INFORMATION
  Report Type: 
  Country: None (occurrence: None)
  Receive Date: 20110908
  Receipt Date: 20110902
  Transmission Date: 20111222
  Serious: Yes (Hospitalization, Other)
  Sender: FDA-Public Use
  Company Number: PHHY2011US61807

PATIENT
  Sex: Female
  Weight: 76.6 kg

DRUGS (1)
  1. EXJADE [Suspect]
     Indication: NEOPLASM
     Dosage: 1000 MG, QD
     Route: 048
     Dates: start: 20110621

REACTIONS (2)
  - GASTROINTESTINAL HAEMORRHAGE [None]
  - HYPONATRAEMIA [None]
